FAERS Safety Report 13987278 (Version 3)
Quarter: 2018Q1

REPORT INFORMATION
  Report Type: Spontaneous
  Country: DE (occurrence: DE)
  Receive Date: 20170919
  Receipt Date: 20180207
  Transmission Date: 20180508
  Serious: Yes (Other)
  Sender: FDA-Public Use
  Company Number: DE-TEVA-805899GER

PATIENT
  Age: 76 Year
  Sex: Female
  Weight: 71 kg

DRUGS (7)
  1. TELMISARTAN 80 [Concomitant]
     Dosage: 1-0-0
  2. ATORVASTATIN [Concomitant]
     Active Substance: ATORVASTATIN
     Dosage: 0-0-1
  3. BISOPROLOL 5 [Concomitant]
     Active Substance: BISOPROLOL
     Dosage: 1-0-0
  4. HEPARIN-NATRIUM-25 000-RATIOPHARM [Suspect]
     Active Substance: HEPARIN SODIUM
     Dosage: 45000 IU (INTERNATIONAL UNIT) DAILY;
     Route: 065
     Dates: start: 20170811, end: 20170811
  5. TRANEXAMIC ACID. [Suspect]
     Active Substance: TRANEXAMIC ACID
     Route: 065
     Dates: start: 20170811, end: 20170811
  6. L-THYROXIN 100 [Concomitant]
     Active Substance: LEVOTHYROXINE SODIUM
     Dosage: 1-0-0
  7. HCT 12.5 [Concomitant]
     Dosage: 1-0-0

REACTIONS (3)
  - Blood pressure decreased [Recovered/Resolved]
  - Circulatory collapse [Recovered/Resolved]
  - Vasodilatation [Recovered/Resolved]

NARRATIVE: CASE EVENT DATE: 20170811
